FAERS Safety Report 11070670 (Version 1)
Quarter: 2015Q2

REPORT INFORMATION
  Report Type: Report from Study
  Country: CA (occurrence: CA)
  Receive Date: 20150427
  Receipt Date: 20150427
  Transmission Date: 20150821
  Serious: Yes (Death)
  Sender: FDA-Public Use
  Company Number: PHHY2015CA048405

PATIENT
  Sex: Female

DRUGS (2)
  1. SANDOSTATIN [Suspect]
     Active Substance: OCTREOTIDE ACETATE
     Indication: METASTATIC NEOPLASM
     Dosage: 100 UG, TID (CONT 2 WEEKS POST 1ST LAR)
     Route: 058
  2. SANDOSTATIN LAR DEPOT [Suspect]
     Active Substance: OCTREOTIDE ACETATE
     Indication: METASTATIC NEOPLASM
     Dosage: 30 MG, QMO
     Route: 030
     Dates: start: 20150416

REACTIONS (3)
  - Gastrointestinal haemorrhage [Fatal]
  - Impaired self-care [Unknown]
  - Product use issue [Unknown]
